FAERS Safety Report 8468169-X (Version None)
Quarter: 2012Q2

REPORT INFORMATION
  Report Type: 
  Country: None (occurrence: None)
  Receive Date: 20120626
  Receipt Date: 20120622
  Transmission Date: 20120825
  Serious: Yes (Hospitalization, Disabling)
  Sender: FDA-Public Use
  Company Number: US-MERCK-1201USA04017

PATIENT
  Age: 42 Year
  Sex: Female

DRUGS (5)
  1. ESTROGENS, CONJUGATED AND PROGESTERONE [Concomitant]
     Indication: HORMONE REPLACEMENT THERAPY
     Route: 065
     Dates: start: 19930101, end: 20070101
  2. FOSAMAX [Suspect]
     Route: 048
     Dates: start: 20040311, end: 20100302
  3. FOSAMAX [Suspect]
     Indication: OSTEOPOROSIS PROPHYLAXIS
     Route: 048
     Dates: start: 19960101
  4. FOSAMAX PLUS D [Suspect]
     Indication: OSTEOPOROSIS PROPHYLAXIS
     Route: 048
     Dates: start: 20040311, end: 20100302
  5. SYNTHROID [Concomitant]
     Indication: HYPOTHYROIDISM
     Route: 065
     Dates: start: 19710101

REACTIONS (9)
  - NEUROPATHY PERIPHERAL [None]
  - FEMUR FRACTURE [None]
  - MIGRAINE [None]
  - TOOTH DISORDER [None]
  - FOOT FRACTURE [None]
  - BLOOD CHOLESTEROL INCREASED [None]
  - DEPRESSION [None]
  - ANXIETY [None]
  - FALL [None]
